FAERS Safety Report 16581077 (Version 2)
Quarter: 2019Q3

REPORT INFORMATION
  Report Type: Spontaneous
  Country: GR (occurrence: GR)
  Receive Date: 20190716
  Receipt Date: 20190730
  Transmission Date: 20191004
  Serious: Yes (Hospitalization)
  Sender: FDA-Public Use
  Company Number: PHHY2019GR163609

PATIENT
  Age: 36 Year
  Sex: Female

DRUGS (2)
  1. FUROSEMIDE. [Suspect]
     Active Substance: FUROSEMIDE
     Indication: PRODUCT USED FOR UNKNOWN INDICATION
     Route: 042
  2. ZOLEDRONATE [Suspect]
     Active Substance: ZOLEDRONIC ACID
     Indication: PRODUCT USED FOR UNKNOWN INDICATION
     Dosage: UNK
     Route: 065

REACTIONS (9)
  - Pyrexia [Recovered/Resolved]
  - Disease progression [Unknown]
  - Blood calcium decreased [Recovered/Resolved]
  - Anaemia [Recovered/Resolved]
  - Inflammatory marker increased [Unknown]
  - Urine output decreased [Recovering/Resolving]
  - Blood creatinine decreased [Recovered/Resolved]
  - Respiratory tract infection [Recovering/Resolving]
  - Micturition disorder [Unknown]
